FAERS Safety Report 26151389 (Version 1)
Quarter: 2025Q4

REPORT INFORMATION
  Report Type: Spontaneous
  Country: US (occurrence: US)
  Receive Date: 20251212
  Receipt Date: 20251212
  Transmission Date: 20260117
  Serious: No
  Sender: ROCHE
  Company Number: US-ROCHE-10000453197

PATIENT
  Sex: Male

DRUGS (1)
  1. COTELLIC [Suspect]
     Active Substance: COBIMETINIB FUMARATE
     Indication: Metabolic disorder
     Dosage: FOR 21 DAYS, THEN 7 DAYS OFF
     Route: 048
     Dates: start: 202504

REACTIONS (1)
  - Skin disorder [Unknown]
